FAERS Safety Report 24448256 (Version 5)
Quarter: 2025Q2

REPORT INFORMATION
  Report Type: Report from Study
  Country: US (occurrence: US)
  Receive Date: 20241017
  Receipt Date: 20250414
  Transmission Date: 20250717
  Serious: Yes (Hospitalization, Other)
  Sender: UCB
  Company Number: US-UCBSA-2024052828

PATIENT
  Age: 18 Year
  Sex: Male
  Weight: 54 kg

DRUGS (13)
  1. FINTEPLA [Suspect]
     Active Substance: FENFLURAMINE
     Indication: Lennox-Gastaut syndrome
     Dates: start: 202211
  2. FINTEPLA [Suspect]
     Active Substance: FENFLURAMINE
     Indication: Seizure
     Dosage: 6 MILLILITER, 2X/DAY (BID)
     Dates: start: 20230112
  3. FINTEPLA [Suspect]
     Active Substance: FENFLURAMINE
     Dosage: 26.4 MILLIGRAM, ONCE DAILY (QD)
     Dates: start: 2024
  4. VIMPAT [Suspect]
     Active Substance: LACOSAMIDE
     Indication: Product used for unknown indication
  5. VIMPAT [Suspect]
     Active Substance: LACOSAMIDE
     Dosage: 70 MILLIGRAM, 2X/DAY (BID)
     Route: 048
  6. NAYZILAM [Concomitant]
     Active Substance: MIDAZOLAM
     Indication: Product used for unknown indication
  7. RUFINAMIDE [Concomitant]
     Active Substance: RUFINAMIDE
     Indication: Epilepsy
  8. ALBUTEROL [Concomitant]
     Active Substance: ALBUTEROL
     Indication: Product used for unknown indication
  9. FAMOTIDINE [Concomitant]
     Active Substance: FAMOTIDINE
     Indication: Product used for unknown indication
  10. FLUTICASONE [Concomitant]
     Active Substance: FLUTICASONE
     Indication: Product used for unknown indication
  11. NYSTATIN [Concomitant]
     Active Substance: NYSTATIN
     Indication: Product used for unknown indication
  12. POLYETHYLENE GLYCOL 3350 [Concomitant]
     Active Substance: POLYETHYLENE GLYCOL 3350
     Indication: Product used for unknown indication
  13. ARTEMETHER [Concomitant]
     Active Substance: ARTEMETHER
     Indication: Product used for unknown indication
     Dosage: 4 MILLIGRAM, 3X/DAY (TID)

REACTIONS (12)
  - Mitral valve incompetence [Not Recovered/Not Resolved]
  - Seizure [Unknown]
  - Irritability [Unknown]
  - Anxiety [Unknown]
  - Echocardiogram abnormal [Not Recovered/Not Resolved]
  - Pain [Unknown]
  - Swelling [Unknown]
  - Gait disturbance [Unknown]
  - Asthenia [Unknown]
  - Pectus excavatum [Unknown]
  - Patient uncooperative [Unknown]
  - Product use issue [Unknown]

NARRATIVE: CASE EVENT DATE: 20230701
